FAERS Safety Report 6016014-4 (Version None)
Quarter: 2008Q4

REPORT INFORMATION
  Report Type: 
  Country: None (occurrence: None)
  Receive Date: 20081222
  Receipt Date: 20081215
  Transmission Date: 20090506
  Serious: Yes (Other)
  Sender: FDA-Public Use
  Company Number: TN-PFIZER INC-2008098837

PATIENT

DRUGS (2)
  1. DOXAZOSIN MESYLATE [Suspect]
     Indication: BENIGN PROSTATIC HYPERPLASIA
     Dosage: 4 MG, 1X/DAY
     Route: 048
  2. ANTIHYPERTENSIVES [Concomitant]
     Route: 048

REACTIONS (2)
  - FALL [None]
  - ORTHOSTATIC HYPOTENSION [None]
